FAERS Safety Report 9690117 (Version 1)
Quarter: 2013Q4

REPORT INFORMATION
  Report Type: Spontaneous
  Country: NL (occurrence: NL)
  Receive Date: 20131115
  Receipt Date: 20131115
  Transmission Date: 20140711
  Serious: Yes (Death, Congenital Anomaly)
  Sender: FDA-Public Use
  Company Number: PHHY2013NL126062

PATIENT
  Sex: 0

DRUGS (3)
  1. SANDOSTATIN LAR [Suspect]
     Indication: NEUROENDOCRINE TUMOUR
     Dosage: 20MG ONCE EVERY MONTH (MATERNAL DOSE)
     Route: 064
  2. SANDOSTATIN LAR [Suspect]
     Dosage: 20MG ONCE EVERY MONTH (MATERNAL DOSE)
     Route: 064
     Dates: start: 20121205
  3. CREON [Concomitant]
     Indication: NEUROENDOCRINE TUMOUR
     Dosage: 150 MG TID (MATERNAL DOSE)
     Route: 064

REACTIONS (2)
  - Limb reduction defect [Fatal]
  - Foetal exposure during pregnancy [Unknown]
